FAERS Safety Report 19281304 (Version 1)
Quarter: 2021Q2

REPORT INFORMATION
  Report Type: Spontaneous
  Country: US (occurrence: US)
  Receive Date: 20210521
  Receipt Date: 20210521
  Transmission Date: 20210717
  Serious: Yes (Other)
  Sender: FDA-Public Use
  Company Number: US-DRREDDYS-USA/USA/21/0135752

PATIENT
  Age: 17 Month
  Sex: Female

DRUGS (9)
  1. VORINOSTAT [Suspect]
     Active Substance: VORINOSTAT
     Indication: ACUTE MEGAKARYOCYTIC LEUKAEMIA
  2. CYTARABINE. [Suspect]
     Active Substance: CYTARABINE
     Indication: ACUTE MEGAKARYOCYTIC LEUKAEMIA
     Route: 037
  3. CYTARABINE. [Suspect]
     Active Substance: CYTARABINE
     Dosage: HIGH?DOSE
  4. DAUNORUBICIN [Suspect]
     Active Substance: DAUNORUBICIN
     Indication: ACUTE MEGAKARYOCYTIC LEUKAEMIA
  5. IDARUBICIN [Suspect]
     Active Substance: IDARUBICIN
     Indication: ACUTE MEGAKARYOCYTIC LEUKAEMIA
  6. DECITABINE. [Suspect]
     Active Substance: DECITABINE
     Indication: ACUTE MEGAKARYOCYTIC LEUKAEMIA
  7. ETOPOSIDE. [Suspect]
     Active Substance: ETOPOSIDE
     Indication: ACUTE MEGAKARYOCYTIC LEUKAEMIA
  8. GEMTUZUMAB?OZOGAMICIN [Suspect]
     Active Substance: GEMTUZUMAB OZOGAMICIN
     Indication: ACUTE MEGAKARYOCYTIC LEUKAEMIA
  9. FLUDARABINE [Suspect]
     Active Substance: FLUDARABINE PHOSPHATE
     Indication: ACUTE MEGAKARYOCYTIC LEUKAEMIA

REACTIONS (1)
  - Drug ineffective [Unknown]
